FAERS Safety Report 15877653 (Version 3)
Quarter: 2019Q1

REPORT INFORMATION
  Report Type: Spontaneous
  Country: KR (occurrence: KR)
  Receive Date: 20190128
  Receipt Date: 20190204
  Transmission Date: 20190417
  Serious: Yes (Death, Other)
  Sender: FDA-Public Use
  Company Number: KR-009507513-1901KOR008345

PATIENT
  Sex: Female

DRUGS (14)
  1. ENCOVER [Concomitant]
     Dosage: QUANTITY:1
     Dates: start: 20181030
  2. KEYTRUDA [Suspect]
     Active Substance: PEMBROLIZUMAB
     Indication: GALLBLADDER CANCER
     Dosage: QUANTITY: 2
     Dates: start: 20181030
  3. KEYTRUDA [Suspect]
     Active Substance: PEMBROLIZUMAB
     Dosage: QUANTITY: 1
     Dates: start: 20181120
  4. MORPHINE SULFATE. [Concomitant]
     Active Substance: MORPHINE SULFATE
     Dosage: QUANTITY:2
     Route: 048
     Dates: start: 20181120
  5. LASIX [Concomitant]
     Active Substance: FUROSEMIDE
     Dosage: QUANTITY:1
     Dates: start: 20181120
  6. SODIUM CHLORIDE. [Concomitant]
     Active Substance: SODIUM CHLORIDE
     Dosage: QUANTITY:1
     Dates: start: 20181120
  7. CELEBREX [Concomitant]
     Active Substance: CELECOXIB
     Dosage: QUANTITY:2
     Dates: start: 20181120
  8. SPIRACTON [Concomitant]
     Active Substance: SPIRONOLACTONE
     Dosage: QUANTITY:2
     Route: 048
     Dates: start: 20181030
  9. LASIX [Concomitant]
     Active Substance: FUROSEMIDE
     Dosage: QUANTITY:1
     Dates: start: 20181030
  10. SODIUM CHLORIDE. [Concomitant]
     Active Substance: SODIUM CHLORIDE
     Dosage: QUANTITY:1
     Dates: start: 20181030
  11. CELEBREX [Concomitant]
     Active Substance: CELECOXIB
     Dosage: QUANTITY:2
     Dates: start: 20181030
  12. MORPHINE SULFATE. [Concomitant]
     Active Substance: MORPHINE SULFATE
     Dosage: QUANTITY:3
     Route: 048
     Dates: start: 20181030
  13. ENCOVER [Concomitant]
     Dosage: QUANTITY:1
     Dates: start: 20181030
  14. MEGACE F [Concomitant]
     Dosage: QUANTITY:1
     Dates: start: 20181030

REACTIONS (3)
  - Bile duct cancer [Fatal]
  - Renal failure [Fatal]
  - Product use in unapproved indication [Unknown]

NARRATIVE: CASE EVENT DATE: 2018
